FAERS Safety Report 16140503 (Version 2)
Quarter: 2020Q1

REPORT INFORMATION
  Report Type: Spontaneous
  Country: US (occurrence: US)
  Receive Date: 20190401
  Receipt Date: 20200330
  Transmission Date: 20200409
  Serious: No
  Sender: FDA-Public Use
  Company Number: US-SEPTODONT-201804893

PATIENT

DRUGS (1)
  1. LIDOCAINE CARTRIDGE 2% W/EPI [Suspect]
     Active Substance: EPINEPHRINE\LIDOCAINE
     Indication: DENTAL LOCAL ANAESTHESIA
     Route: 004
     Dates: start: 20181114, end: 20181114

REACTIONS (2)
  - Discomfort [Unknown]
  - Product dispensing issue [Unknown]

NARRATIVE: CASE EVENT DATE: 20181114
